FAERS Safety Report 25769036 (Version 1)
Quarter: 2025Q3

REPORT INFORMATION
  Report Type: Report from Study
  Country: AR (occurrence: AR)
  Receive Date: 20250905
  Receipt Date: 20250905
  Transmission Date: 20251021
  Serious: Yes (Hospitalization)
  Sender: ELI LILLY AND COMPANY
  Company Number: AR-ELI_LILLY_AND_COMPANY-AR202509001887

PATIENT
  Age: 45 Year
  Sex: Female

DRUGS (1)
  1. VERZENIO [Suspect]
     Active Substance: ABEMACICLIB
     Indication: Breast cancer
     Dosage: 150 MG, BID
     Route: 048
     Dates: start: 20241017, end: 20250611

REACTIONS (1)
  - Breast cancer recurrent [Recovered/Resolved]

NARRATIVE: CASE EVENT DATE: 20250501
